FAERS Safety Report 5179901-5 (Version None)
Quarter: 2006Q4

REPORT INFORMATION
  Report Type: 
  Country: None (occurrence: None)
  Receive Date: 20061211
  Receipt Date: 20061130
  Transmission Date: 20070319
  Serious: Yes (Other)
  Sender: FDA-Public Use
  Company Number: 150403ISR

PATIENT
  Age: 58 Year
  Sex: Male

DRUGS (5)
  1. PREDNISOLONE [Suspect]
     Indication: BAROTITIS MEDIA
     Dosage: 80 MG
  2. OFLOXACIN [Suspect]
     Indication: OTORRHOEA
     Dosage: 2 IN 1 D
     Dates: end: 20060308
  3. AMOXI-CLAVULANIC [Concomitant]
  4. NEPHAZOLINE [Concomitant]
  5. INDAPAMIDE [Concomitant]

REACTIONS (5)
  - GAIT DISTURBANCE [None]
  - OTORRHOEA [None]
  - PARAESTHESIA [None]
  - TENDON RUPTURE [None]
  - TREATMENT NONCOMPLIANCE [None]
